FAERS Safety Report 25894152 (Version 1)
Quarter: 2025Q4

REPORT INFORMATION
  Report Type: Spontaneous
  Country: EU (occurrence: EU)
  Receive Date: 20251008
  Receipt Date: 20251008
  Transmission Date: 20260119
  Serious: Yes (Death, Life-Threatening, Hospitalization, Other)
  Sender: HIKMA
  Company Number: EU-MLMSERVICE-20250918-PI648429-00165-1

PATIENT
  Age: 35 Year
  Sex: Female

DRUGS (2)
  1. GEMCITABINE [Suspect]
     Active Substance: GEMCITABINE
     Indication: Sarcoma metastatic
     Dosage: UNKNOWN
     Route: 065
     Dates: start: 202410
  2. GEMCITABINE [Suspect]
     Active Substance: GEMCITABINE
     Indication: Histiocytic sarcoma

REACTIONS (3)
  - Subacute cutaneous lupus erythematosus [Fatal]
  - Condition aggravated [Fatal]
  - Corynebacterium sepsis [Fatal]

NARRATIVE: CASE EVENT DATE: 20241001
